FAERS Safety Report 5976175-X (Version None)
Quarter: 2008Q4

REPORT INFORMATION
  Report Type: 
  Country: None (occurrence: None)
  Receive Date: 20081202
  Receipt Date: 20081121
  Transmission Date: 20090506
  Serious: Yes (Death, Hospitalization, Other)
  Sender: FDA-Public Use
  Company Number: GB-BAXTER-2008BH012931

PATIENT
  Age: 49 Year
  Sex: Female

DRUGS (9)
  1. HEPARIN SODIUM 1,000 UNITS AND SODIUM CHLORIDE 0.9% [Suspect]
     Indication: THROMBOSIS PROPHYLAXIS
     Route: 010
  2. HEPARIN SODIUM 1,000 UNITS AND SODIUM CHLORIDE 0.9% [Suspect]
     Route: 040
  3. HEPARIN SODIUM 1,000 UNITS AND SODIUM CHLORIDE 0.9% [Suspect]
     Route: 065
  4. MYCOPHENOLATE MOFETIL [Suspect]
     Indication: TRANSPLANT REJECTION
     Dosage: DOSE UNIT:UNKNOWN
     Route: 065
  5. ANTI-THYMOCYTE GLOBULIN NOS [Concomitant]
     Indication: TRANSPLANT REJECTION
  6. IMMUNE GLOBULIN NOS [Concomitant]
     Indication: TRANSPLANT REJECTION
     Route: 042
  7. STEROID ANTIBACTERIALS [Concomitant]
     Indication: TRANSPLANT REJECTION
  8. TACROLIMUS [Concomitant]
     Indication: TRANSPLANT REJECTION
  9. VANCOMYCIN [Concomitant]
     Indication: TRANSPLANT REJECTION
     Route: 010

REACTIONS (11)
  - ABDOMINAL WALL HAEMATOMA [None]
  - CONFUSIONAL STATE [None]
  - DIALYSIS DEVICE COMPLICATION [None]
  - DIVERTICULUM [None]
  - GASTROINTESTINAL HAEMORRHAGE [None]
  - HAEMOGLOBIN DECREASED [None]
  - HYPOTENSION [None]
  - ILL-DEFINED DISORDER [None]
  - OESOPHAGITIS [None]
  - PULMONARY SEPSIS [None]
  - TRANSPLANT REJECTION [None]
